FAERS Safety Report 4506009-1 (Version None)
Quarter: 2004Q4

REPORT INFORMATION
  Report Type: 
  Country: None (occurrence: None)
  Receive Date: 20041025
  Receipt Date: 20031222
  Transmission Date: 20050328
  Serious: Yes (Other)
  Sender: FDA-Public Use
  Company Number: US-JNJFOC-20030905668

PATIENT
  Age: 81 Year
  Sex: Female
  Weight: 48.5349 kg

DRUGS (13)
  1. REMICADE [Suspect]
     Indication: RHEUMATOID ARTHRITIS
     Dosage: 200 MG, INTRAVENOUS; RESTARTED
     Route: 042
     Dates: start: 20031215, end: 20031215
  2. REMICADE [Suspect]
     Indication: RHEUMATOID ARTHRITIS
     Dosage: 200 MG, INTRAVENOUS; RESTARTED
     Route: 042
     Dates: start: 20021106
  3. REMICADE [Suspect]
     Indication: RHEUMATOID ARTHRITIS
     Dosage: 200 MG, INTRAVENOUS; RESTARTED
     Route: 042
     Dates: start: 20021127
  4. REMICADE [Suspect]
     Indication: RHEUMATOID ARTHRITIS
     Dosage: 200 MG, INTRAVENOUS; RESTARTED
     Route: 042
     Dates: start: 20021230
  5. REMICADE [Suspect]
     Indication: RHEUMATOID ARTHRITIS
     Dosage: 200 MG, INTRAVENOUS; RESTARTED
     Route: 042
     Dates: start: 20030224
  6. REMICADE [Suspect]
     Indication: RHEUMATOID ARTHRITIS
     Dosage: 200 MG, INTRAVENOUS; RESTARTED
     Route: 042
     Dates: start: 20030421
  7. REMICADE [Suspect]
     Indication: RHEUMATOID ARTHRITIS
     Dosage: 200 MG, INTRAVENOUS; RESTARTED
     Route: 042
     Dates: start: 20030604
  8. REMICADE [Suspect]
     Indication: RHEUMATOID ARTHRITIS
     Dosage: 200 MG, INTRAVENOUS; RESTARTED
     Route: 042
     Dates: start: 20030728
  9. METHOTREXATE [Concomitant]
  10. TOPROL (METOPROLOL SUCCINATE) [Concomitant]
  11. AMBIEN [Concomitant]
  12. ATIVAN [Concomitant]
  13. TERIPARATIDE (TERIPARATIDE) INJECTION [Concomitant]

REACTIONS (1)
  - MALIGNANT MELANOMA [None]
